FAERS Safety Report 5864108-6 (Version None)
Quarter: 2008Q3

REPORT INFORMATION
  Report Type: 
  Country: None (occurrence: None)
  Receive Date: 20080829
  Receipt Date: 20080819
  Transmission Date: 20090109
  Serious: Yes (Hospitalization)
  Sender: FDA-Public Use
  Company Number: US-JNJFOC-20080600693

PATIENT
  Age: 21 Year
  Sex: Male

DRUGS (3)
  1. DORIBAX [Suspect]
     Indication: PNEUMONIA
     Route: 041
  2. FENTANYL CITRATE [Suspect]
     Indication: DRUG USE FOR UNKNOWN INDICATION
     Route: 042
  3. ATIVAN [Concomitant]

REACTIONS (1)
  - CONVULSION [None]
